FAERS Safety Report 4535825-5 (Version None)
Quarter: 2004Q4

REPORT INFORMATION
  Report Type: 
  Country: None (occurrence: None)
  Receive Date: 20041223
  Receipt Date: 20040407
  Transmission Date: 20050328
  Serious: No
  Sender: FDA-Public Use
  Company Number: US-GLAXOSMITHKLINE-A0506261A

PATIENT
  Age: 81 Year
  Sex: Male

DRUGS (5)
  1. FLONASE [Suspect]
     Dosage: 1SPR PER DAY
     Route: 045
     Dates: start: 20030101, end: 20030101
  2. DIOVAN [Concomitant]
  3. ZOCOR [Concomitant]
  4. HYTRIN [Concomitant]
  5. ASPIRIN [Concomitant]

REACTIONS (1)
  - EPISTAXIS [None]
